FAERS Safety Report 22195325 (Version 2)
Quarter: 2023Q2

REPORT INFORMATION
  Report Type: Spontaneous
  Country: AU (occurrence: AU)
  Receive Date: 20230411
  Receipt Date: 20230509
  Transmission Date: 20230721
  Serious: No
  Sender: FDA-Public Use
  Company Number: AU-AMGEN-AUSSP2023054447

PATIENT
  Sex: Male

DRUGS (1)
  1. ADALIMUMAB [Suspect]
     Active Substance: ADALIMUMAB
     Indication: Product used for unknown indication
     Dosage: UNK
     Route: 065

REACTIONS (5)
  - Epigastric discomfort [Unknown]
  - Feeling abnormal [Unknown]
  - Hunger [Unknown]
  - Device difficult to use [Unknown]
  - Injection site bruising [Unknown]
